FAERS Safety Report 7138847-3 (Version None)
Quarter: 2010Q4

REPORT INFORMATION
  Report Type: 
  Country: None (occurrence: None)
  Receive Date: 20101206
  Receipt Date: 20101126
  Transmission Date: 20110411
  Serious: Yes (Death, Life-Threatening)
  Sender: FDA-Public Use
  Company Number: PT-JNJFOC-20101200525

PATIENT
  Age: 7 Decade
  Sex: Male

DRUGS (2)
  1. REMICADE [Suspect]
     Indication: CROHN'S DISEASE
     Dosage: TREATMENT INITIATED 3 YEARS AGO
     Route: 042
  2. ORAL DIABETES MEDICATION [Concomitant]
     Route: 048

REACTIONS (4)
  - ANAEMIA [None]
  - GASTRIC NEOPLASM [None]
  - METASTASES TO LIVER [None]
  - PULMONARY EMBOLISM [None]
